FAERS Safety Report 4838860-2 (Version None)
Quarter: 2005Q4

REPORT INFORMATION
  Report Type: 
  Country: None (occurrence: None)
  Receive Date: 20051129
  Receipt Date: 20051028
  Transmission Date: 20060501
  Serious: No
  Sender: FDA-Public Use
  Company Number: US-GLAXOSMITHKLINE-A0580077A

PATIENT
  Sex: Female

DRUGS (1)
  1. COMMIT [Suspect]

REACTIONS (1)
  - RETCHING [None]
